FAERS Safety Report 21958139 (Version 1)
Quarter: 2023Q1

REPORT INFORMATION
  Report Type: Other
  Country: CN (occurrence: None)
  Receive Date: 20230206
  Receipt Date: 20230206
  Transmission Date: 20230418
  Serious: Yes (Death)
  Sender: FDA-Public Use
  Company Number: CN-ROCHE-3210868

PATIENT
  Age: 54 Year
  Sex: Female
  Weight: 58 kg

DRUGS (1)
  1. TECENTRIQ [Suspect]
     Active Substance: ATEZOLIZUMAB
     Indication: Hepatic cancer
     Dosage: INJECTION, 1200MG/20ML
     Route: 041
     Dates: start: 20221027

REACTIONS (4)
  - Dyspnoea [Unknown]
  - Pyrexia [Unknown]
  - Blood pressure increased [Unknown]
  - Death [Fatal]
